FAERS Safety Report 18740107 (Version 1)
Quarter: 2021Q1

REPORT INFORMATION
  Report Type: Report from Study
  Country: US (occurrence: US)
  Receive Date: 20210114
  Receipt Date: 20210114
  Transmission Date: 20210419
  Serious: Yes (Other)
  Sender: FDA-Public Use
  Company Number: US-GLAXOSMITHKLINE-US2020GSK259420

PATIENT
  Sex: Male

DRUGS (2)
  1. ATOVAQUONE + PROGUANIL HYDROCHLORIDE [Suspect]
     Active Substance: ATOVAQUONE\PROGUANIL HYDROCHLORIDE
     Indication: PLASMODIUM FALCIPARUM INFECTION
     Dosage: 1000 MG/400 MG
  2. PRIMAQUINE [Concomitant]
     Active Substance: PRIMAQUINE PHOSPHATE
     Indication: PLASMODIUM FALCIPARUM INFECTION
     Dosage: 15 MG

REACTIONS (2)
  - Malaria recrudescence [Unknown]
  - Treatment failure [Unknown]
